FAERS Safety Report 25247011 (Version 1)
Quarter: 2025Q2

REPORT INFORMATION
  Report Type: Spontaneous
  Country: CN (occurrence: CN)
  Receive Date: 20250428
  Receipt Date: 20250428
  Transmission Date: 20250717
  Serious: Yes (Life-Threatening, Other)
  Sender: MERCK SHARP & DOHME LLC
  Company Number: CN-009507513-2278378

PATIENT
  Age: 30 Year
  Sex: Male
  Weight: 66 kg

DRUGS (2)
  1. CILASTATIN SODIUM\IMIPENEM [Suspect]
     Active Substance: CILASTATIN SODIUM\IMIPENEM
     Indication: Sepsis
     Route: 041
     Dates: start: 20250408
  2. SODIUM CHLORIDE [Concomitant]
     Active Substance: SODIUM CHLORIDE
     Route: 041
     Dates: start: 20250408

REACTIONS (10)
  - Seizure [Recovered/Resolved]
  - Partial seizures [Recovered/Resolved]
  - Vomiting [Recovered/Resolved]
  - Sepsis [Unknown]
  - Device related infection [Unknown]
  - Septic shock [Unknown]
  - End stage renal disease [Unknown]
  - Muscle rigidity [Recovered/Resolved]
  - Loss of consciousness [Recovered/Resolved]
  - Foaming at mouth [Recovered/Resolved]

NARRATIVE: CASE EVENT DATE: 20250408
